FAERS Safety Report 25142692 (Version 1)
Quarter: 2025Q1

REPORT INFORMATION
  Report Type: Spontaneous
  Country: US (occurrence: US)
  Receive Date: 20250331
  Receipt Date: 20250331
  Transmission Date: 20250409
  Serious: No
  Sender: BIOGEN
  Company Number: US-BIOGEN-2025BI01305203

PATIENT
  Sex: Male

DRUGS (1)
  1. SPINRAZA [Suspect]
     Active Substance: NUSINERSEN
     Indication: Spinal muscular atrophy
     Route: 050

REACTIONS (6)
  - Hypoaesthesia [Unknown]
  - Skin lesion [Unknown]
  - Thyroiditis [Unknown]
  - Pain in extremity [Unknown]
  - Dysphagia [Unknown]
  - Post procedural complication [Unknown]
